FAERS Safety Report 17988238 (Version 1)
Quarter: 2020Q3

REPORT INFORMATION
  Report Type: Spontaneous
  Country: JP (occurrence: JP)
  Receive Date: 20200707
  Receipt Date: 20200707
  Transmission Date: 20201103
  Serious: Yes (Other)
  Sender: FDA-Public Use
  Company Number: JP-ROCHE-2637222

PATIENT
  Age: 4 Decade

DRUGS (1)
  1. AVASTIN [Suspect]
     Active Substance: BEVACIZUMAB
     Indication: MALIGNANT GLIOMA
     Dosage: DOSAGE IS UNCERTAIN.
     Route: 042

REACTIONS (2)
  - Fracture [Not Recovered/Not Resolved]
  - Fall [Unknown]
